FAERS Safety Report 4335243-9 (Version None)
Quarter: 2004Q2

REPORT INFORMATION
  Report Type: 
  Country: None (occurrence: None)
  Receive Date: 20040406
  Receipt Date: 20040110
  Transmission Date: 20050107
  Serious: Yes (Other)
  Sender: FDA-Public Use
  Company Number: 355769

PATIENT
  Sex: Female

DRUGS (1)
  1. FUZEON [Suspect]
     Indication: DRUG USE FOR UNKNOWN INDICATION
     Dosage: 90 MG  2 PER DAY   SUBCUTANEOUS
     Route: 058
     Dates: start: 20031205, end: 20040109

REACTIONS (5)
  - HYPERSENSITIVITY [None]
  - ILL-DEFINED DISORDER [None]
  - RASH [None]
  - URTICARIA [None]
  - WOUND SECRETION [None]
